FAERS Safety Report 6737714-4 (Version None)
Quarter: 2010Q2

REPORT INFORMATION
  Report Type: 
  Country: None (occurrence: None)
  Receive Date: 20100524
  Receipt Date: 20100511
  Transmission Date: 20101027
  Serious: Yes (Hospitalization)
  Sender: FDA-Public Use
  Company Number: PHHY2010JP21955

PATIENT
  Age: 82 Year
  Sex: Male
  Weight: 60 kg

DRUGS (8)
  1. TEGRETOL [Suspect]
     Indication: EPILEPSY
     Dosage: 400 MG/DAILY
     Route: 048
     Dates: start: 20100403, end: 20100406
  2. PLETAL [Interacting]
     Dosage: 100 MG, UNK
     Route: 048
  3. LOSARTAN POTASSIUM AND HYDROCHLOROTHIAZIDE [Interacting]
     Dosage: UNK, UNK
     Route: 048
  4. AMLODIN [Interacting]
     Dosage: UNK, UNK
     Route: 048
  5. ASPIRIN [Interacting]
     Route: 048
  6. DOXAZOSIN MESYLATE [Interacting]
     Dosage: 2 MG, UNK
     Route: 048
  7. NIZATIDINE [Interacting]
     Dosage: UNK, UNK
     Route: 048
  8. EPALRESTAT [Interacting]
     Route: 048

REACTIONS (6)
  - ANTICONVULSANT DRUG LEVEL INCREASED [None]
  - DRUG INTERACTION [None]
  - DYSARTHRIA [None]
  - HALLUCINATION [None]
  - RESTLESSNESS [None]
  - SOMNOLENCE [None]
